FAERS Safety Report 7725471-4 (Version None)
Quarter: 2011Q3

REPORT INFORMATION
  Report Type: 
  Country: None (occurrence: None)
  Receive Date: 20110902
  Receipt Date: 20110803
  Transmission Date: 20111222
  Serious: No
  Sender: FDA-Public Use
  Company Number: US-BRISTOL-MYERS SQUIBB COMPANY-15939606

PATIENT
  Age: 49 Year
  Sex: Female

DRUGS (1)
  1. KOMBIGLYZE XR [Suspect]
     Dosage: 1DF=5/1000 MG

REACTIONS (4)
  - HYPERHIDROSIS [None]
  - DYSPNOEA [None]
  - MALAISE [None]
  - NAUSEA [None]
